FAERS Safety Report 6834422-6 (Version None)
Quarter: 2010Q3

REPORT INFORMATION
  Report Type: 
  Country: None (occurrence: None)
  Receive Date: 20100712
  Receipt Date: 20070418
  Transmission Date: 20110219
  Serious: No
  Sender: FDA-Public Use
  Company Number: US-PFIZER INC-2007031803

PATIENT
  Sex: Female
  Weight: 90.909 kg

DRUGS (10)
  1. CHANTIX [Suspect]
     Indication: SMOKING CESSATION THERAPY
     Dates: start: 20070130, end: 20070301
  2. SEROQUEL [Concomitant]
  3. HYDROXYZINE [Concomitant]
  4. KLONOPIN [Concomitant]
  5. PREMARIN [Concomitant]
  6. NEXIUM [Concomitant]
  7. LUNESTA [Concomitant]
  8. ZOCOR [Concomitant]
  9. FIORINAL [Concomitant]
     Indication: MIGRAINE
  10. TYLENOL (CAPLET) [Concomitant]

REACTIONS (5)
  - ANXIETY [None]
  - FEELING ABNORMAL [None]
  - HEADACHE [None]
  - NERVOUSNESS [None]
  - TOOTH EXTRACTION [None]
